FAERS Safety Report 6308470-9 (Version None)
Quarter: 2009Q3

REPORT INFORMATION
  Report Type: 
  Country: None (occurrence: None)
  Receive Date: 20090813
  Receipt Date: 20090810
  Transmission Date: 20100115
  Serious: Yes (Death, Other)
  Sender: FDA-Public Use
  Company Number: PHEH2008US11561

PATIENT
  Sex: Female

DRUGS (3)
  1. GLEEVEC [Suspect]
     Dosage: 300 MG/DAY
     Route: 048
  2. BETA BLOCKING AGENTS [Concomitant]
     Indication: ARRHYTHMIA
  3. PHENOTHIAZINE [Concomitant]

REACTIONS (6)
  - CONFUSIONAL STATE [None]
  - DEATH [None]
  - FAILURE TO THRIVE [None]
  - FALL [None]
  - HALLUCINATION [None]
  - PARKINSON'S DISEASE [None]
